FAERS Safety Report 8147804-X (Version None)
Quarter: 2012Q1

REPORT INFORMATION
  Report Type: 
  Country: None (occurrence: None)
  Receive Date: 20120218
  Receipt Date: 20110317
  Transmission Date: 20120608
  Serious: No
  Sender: FDA-Public Use
  Company Number: US-ALLERGAN-1103845US

PATIENT
  Age: 32 Year
  Sex: Female

DRUGS (1)
  1. BOTOX COSMETIC [Suspect]
     Indication: SKIN WRINKLING
     Dosage: 40 UNITS, SINGLE
     Route: 030
     Dates: start: 20110308, end: 20110308

REACTIONS (8)
  - INCREASED UPPER AIRWAY SECRETION [None]
  - NASOPHARYNGITIS [None]
  - COUGH [None]
  - RASH [None]
  - DIZZINESS [None]
  - RASH ERYTHEMATOUS [None]
  - HEADACHE [None]
  - FATIGUE [None]
